FAERS Safety Report 13254929 (Version 1)
Quarter: 2017Q1

REPORT INFORMATION
  Report Type: Spontaneous
  Country: US (occurrence: US)
  Receive Date: 20170217
  Receipt Date: 20170217
  Transmission Date: 20170428
  Serious: Yes (Other)
  Sender: FDA-Public Use
  Company Number: None

PATIENT
  Age: 72 Year
  Sex: Male
  Weight: 90.9 kg

DRUGS (5)
  1. IBY [Concomitant]
  2. COQ 10 [Concomitant]
     Active Substance: UBIDECARENONE
  3. LISINOPRIL. [Concomitant]
     Active Substance: LISINOPRIL
  4. LOW DOSE BAUER ASPRIN [Concomitant]
  5. LIPITOR [Suspect]
     Active Substance: ATORVASTATIN CALCIUM
     Indication: BLOOD CHOLESTEROL INCREASED
     Dosage: ?          QUANTITY:1 TABLET(S);?
     Route: 048
     Dates: end: 20170202

REACTIONS (4)
  - Myalgia [None]
  - Bone pain [None]
  - Abasia [None]
  - Insomnia [None]

NARRATIVE: CASE EVENT DATE: 20170217
